FAERS Safety Report 9362021 (Version 2)
Quarter: 2013Q3

REPORT INFORMATION
  Report Type: Report from Study
  Country: CA (occurrence: CA)
  Receive Date: 20130621
  Receipt Date: 20130711
  Transmission Date: 20140515
  Serious: Yes (Death)
  Sender: FDA-Public Use
  Company Number: CA-ASTRAZENECA-2013SE47664

PATIENT
  Age: 66 Year
  Sex: Male

DRUGS (1)
  1. ZOLADEX LA [Suspect]
     Indication: PROSTATE CANCER
     Route: 058
     Dates: start: 20101224

REACTIONS (2)
  - Malignant neoplasm progression [Fatal]
  - Metastasis [Fatal]
